FAERS Safety Report 6271506-8 (Version None)
Quarter: 2009Q3

REPORT INFORMATION
  Report Type: 
  Country: None (occurrence: None)
  Receive Date: 20090717
  Receipt Date: 20090709
  Transmission Date: 20100115
  Serious: Yes (Death, Hospitalization)
  Sender: FDA-Public Use
  Company Number: PHEH2009US06638

PATIENT
  Sex: Male
  Weight: 88.3 kg

DRUGS (3)
  1. EXJADE [Suspect]
     Indication: MYELODYSPLASTIC SYNDROME
     Dosage: 500 MG, TID
     Route: 048
  2. DAUNORUBICIN HCL [Concomitant]
     Indication: ACUTE MYELOID LEUKAEMIA
  3. CYTARABINE [Concomitant]
     Indication: ACUTE MYELOID LEUKAEMIA

REACTIONS (12)
  - ACUTE MYELOID LEUKAEMIA RECURRENT [None]
  - BACTERAEMIA [None]
  - BLAST CELLS PRESENT [None]
  - CEREBRAL HAEMORRHAGE [None]
  - ENTEROCOLITIS [None]
  - GASTROINTESTINAL HAEMORRHAGE [None]
  - ILEUS PARALYTIC [None]
  - MALIGNANT NEOPLASM PROGRESSION [None]
  - MELAENA [None]
  - MENTAL IMPAIRMENT [None]
  - PYREXIA [None]
  - THROMBOCYTOPENIA [None]
